FAERS Safety Report 10295412 (Version 1)
Quarter: 2014Q3

REPORT INFORMATION
  Report Type: Spontaneous
  Country: US (occurrence: US)
  Receive Date: 20140710
  Receipt Date: 20140710
  Transmission Date: 20150326
  Serious: No
  Sender: FDA-Public Use
  Company Number: US-PURDUE-USA-2014-0113223

PATIENT
  Age: 62 Year
  Sex: Male

DRUGS (1)
  1. BUTRANS [Suspect]
     Active Substance: BUPRENORPHINE
     Indication: INTERVERTEBRAL DISC PROTRUSION
     Dosage: 10 MCG/HR, WEEKLY
     Route: 062
     Dates: start: 20140419, end: 20140420

REACTIONS (3)
  - Insomnia [Recovered/Resolved]
  - Dizziness [Recovered/Resolved]
  - Nausea [Recovered/Resolved]

NARRATIVE: CASE EVENT DATE: 20140420
